FAERS Safety Report 4619276-0 (Version None)
Quarter: 2005Q1

REPORT INFORMATION
  Report Type: 
  Country: None (occurrence: None)
  Receive Date: 20050318
  Receipt Date: 20050318
  Transmission Date: 20050727
  Serious: Yes (Hospitalization)
  Sender: FDA-Public Use
  Company Number: None

PATIENT
  Sex: Female
  Weight: 44.4525 kg

DRUGS (3)
  1. TOPAMAX [Suspect]
     Dosage: 100 MG PO [PRIOR TO ADMISSION]
     Route: 048
  2. ALPRAZOLAM [Concomitant]
  3. IBUPROFEN [Concomitant]

REACTIONS (4)
  - ANXIETY [None]
  - DIZZINESS [None]
  - MUSCLE SPASMS [None]
  - VERTIGO [None]
